FAERS Safety Report 7266026-8 (Version None)
Quarter: 2011Q1

REPORT INFORMATION
  Report Type: 
  Country: None (occurrence: None)
  Receive Date: 20110119
  Receipt Date: 20110112
  Transmission Date: 20110831
  Serious: Yes (Other)
  Sender: FDA-Public Use
  Company Number: 2010SP035032

PATIENT
  Sex: Female

DRUGS (1)
  1. ZISPIN (MIRTAZAPINE / 01293201/ ) [Suspect]
     Indication: PRODUCT USED FOR UNKNOWN INDICATION

REACTIONS (1)
  - INTRACRANIAL PRESSURE INCREASED [None]
